FAERS Safety Report 8503869-4 (Version None)
Quarter: 2012Q3

REPORT INFORMATION
  Report Type: 
  Country: None (occurrence: None)
  Receive Date: 20120711
  Receipt Date: 20120705
  Transmission Date: 20120928
  Serious: Yes (Hospitalization)
  Sender: FDA-Public Use
  Company Number: CA-JNJFOC-20120702542

PATIENT
  Sex: Female
  Weight: 53 kg

DRUGS (11)
  1. XANAX [Concomitant]
     Route: 065
  2. IMURAN [Concomitant]
     Route: 065
  3. MORPHINE [Concomitant]
     Route: 065
  4. MULTI-VITAMINS [Concomitant]
     Route: 065
  5. ALPRAZOLAM [Concomitant]
     Route: 065
  6. ATIVAN [Concomitant]
     Route: 065
  7. NASONEX [Concomitant]
     Route: 065
  8. REMICADE [Suspect]
     Indication: CROHN'S DISEASE
     Route: 042
     Dates: start: 20100501
  9. TRAZODONE HCL [Concomitant]
     Route: 065
  10. ZOFRAN [Concomitant]
     Route: 065
  11. SIMVASTATIN [Concomitant]
     Route: 065

REACTIONS (2)
  - KIDNEY INFECTION [None]
  - GASTROINTESTINAL HAEMORRHAGE [None]
